FAERS Safety Report 9513425 (Version 1)
Quarter: 2013Q3

REPORT INFORMATION
  Report Type: Spontaneous
  Country: US (occurrence: US)
  Receive Date: 20130910
  Receipt Date: 20130910
  Transmission Date: 20140515
  Serious: No
  Sender: FDA-Public Use
  Company Number: US-TARO-2012P1060623

PATIENT
  Age: 84 Year
  Sex: Female
  Weight: 64.41 kg

DRUGS (8)
  1. WARFARIN SODIUM TABLETS USP 1MG [Suspect]
     Indication: ATRIAL FIBRILLATION
     Route: 048
     Dates: start: 2002
  2. WARFARIN SODIUM TABLETS USP 3MG [Suspect]
     Indication: ATRIAL FIBRILLATION
     Route: 048
     Dates: start: 2002
  3. SOTALOL [Concomitant]
  4. DIGOXIN [Concomitant]
  5. LISINOPRIL [Concomitant]
  6. METFORMIN [Concomitant]
  7. VITAMIN C [Concomitant]
  8. VITAMIN D [Concomitant]

REACTIONS (1)
  - Alopecia [Not Recovered/Not Resolved]
